FAERS Safety Report 23663905 (Version 2)
Quarter: 2024Q2

REPORT INFORMATION
  Report Type: Spontaneous
  Country: US (occurrence: US)
  Receive Date: 20240322
  Receipt Date: 20240402
  Transmission Date: 20240716
  Serious: Yes (Other)
  Sender: FDA-Public Use
  Company Number: US-KYOWAKIRIN-2024KK005750

PATIENT

DRUGS (2)
  1. CRYSVITA [Suspect]
     Active Substance: BUROSUMAB-TWZA
     Indication: Hereditary hypophosphataemic rickets
     Dosage: UNK, 1X/2 WEEKS
     Route: 058
     Dates: start: 20240219
  2. CRYSVITA [Suspect]
     Active Substance: BUROSUMAB-TWZA
     Dosage: UNK
     Route: 065
     Dates: start: 20240304

REACTIONS (1)
  - Urticaria [Recovered/Resolved]

NARRATIVE: CASE EVENT DATE: 20240306
